FAERS Safety Report 25408147 (Version 1)
Quarter: 2025Q2

REPORT INFORMATION
  Report Type: Spontaneous
  Country: US (occurrence: US)
  Receive Date: 20250606
  Receipt Date: 20250606
  Transmission Date: 20250716
  Serious: No
  Sender: SANOFI AVENTIS
  Company Number: US-SANOFI-02544152

PATIENT
  Sex: Female

DRUGS (1)
  1. LANTUS SOLOSTAR [Suspect]
     Active Substance: INSULIN GLARGINE
     Indication: Diabetes mellitus
     Dosage: 28 TO 35 UNITS, QD
     Route: 065
     Dates: start: 2015

REACTIONS (4)
  - Walking disability [Unknown]
  - Condition aggravated [Unknown]
  - Visual impairment [Unknown]
  - Off label use [Unknown]
